FAERS Safety Report 14304947 (Version 1)
Quarter: 2017Q4

REPORT INFORMATION
  Report Type: Spontaneous
  Country: JP (occurrence: JP)
  Receive Date: 20171219
  Receipt Date: 20171219
  Transmission Date: 20180321
  Serious: Yes (Other)
  Sender: FDA-Public Use
  Company Number: JP-OTSUKA-JP-2011-11415

PATIENT
  Age: 46 Year
  Sex: Male

DRUGS (6)
  1. ABILIFY [Suspect]
     Active Substance: ARIPIPRAZOLE
     Dosage: UNK UNK, PRN
     Route: 048
     Dates: start: 20110824, end: 20110830
  2. FLUNITRAZEPAM [Concomitant]
     Active Substance: FLUNITRAZEPAM
  3. RISPERDAL [Suspect]
     Active Substance: RISPERIDONE
     Dosage: 1 MG, TID
     Route: 048
     Dates: start: 20110817, end: 20110830
  4. RISPERDAL [Suspect]
     Active Substance: RISPERIDONE
     Dosage: 2 MG, QD
     Route: 048
     Dates: start: 20110817, end: 20110830
  5. RISPERIDONE. [Suspect]
     Active Substance: RISPERIDONE
     Dosage: ALSO RECEIVED RISPERIDONE ORAL SOLUTION: 2 MG/DAY
     Route: 048
     Dates: start: 20110817, end: 20110830
  6. ROHYPNOL [Concomitant]
     Active Substance: FLUNITRAZEPAM
     Route: 065

REACTIONS (4)
  - Blood creatine phosphokinase increased [Unknown]
  - Electrolyte imbalance [Unknown]
  - Blood glucose increased [Recovering/Resolving]
  - Hepatic function abnormal [Recovering/Resolving]

NARRATIVE: CASE EVENT DATE: 20110829
